FAERS Safety Report 8574950-9 (Version None)
Quarter: 2012Q2

REPORT INFORMATION
  Report Type: 
  Country: None (occurrence: None)
  Receive Date: 20120423
  Receipt Date: 20091103
  Transmission Date: 20120825
  Serious: Yes (Other)
  Sender: FDA-Public Use
  Company Number: PHEH2009US15150

PATIENT
  Age: 3 Year
  Sex: Male
  Weight: 11.3 kg

DRUGS (1)
  1. EXJADE [Suspect]
     Indication: IRON OVERLOAD
     Dosage: 210 MG, QD, ORAL
     Route: 048
     Dates: start: 20090701

REACTIONS (3)
  - HAEMATOCHEZIA [None]
  - PLATELET COUNT DECREASED [None]
  - HAEMOGLOBIN DECREASED [None]
